FAERS Safety Report 12727783 (Version 2)
Quarter: 2016Q4

REPORT INFORMATION
  Report Type: Spontaneous
  Country: US (occurrence: US)
  Receive Date: 20160909
  Receipt Date: 20161114
  Transmission Date: 20170207
  Serious: Yes (Other)
  Sender: FDA-Public Use
  Company Number: US-BAXALTA-2016BLT006325

PATIENT
  Age: 67 Year
  Sex: Female
  Weight: 58.9 kg

DRUGS (4)
  1. VENTOLIN [Concomitant]
     Active Substance: ALBUTEROL SULFATE
     Indication: UPPER RESPIRATORY TRACT INFECTION
     Dosage: UNK; PRN; RESCUE INHALER
     Route: 055
  2. HYQVIA [Suspect]
     Active Substance: HUMAN IMMUNOGLOBULIN G\HYALURONIDASE RECOMBINANT HUMAN
     Dosage: 30 G, EVERY 4 WK; SCHEDULED INFUSION
     Route: 058
     Dates: start: 20160825
  3. HYQVIA [Suspect]
     Active Substance: HUMAN IMMUNOGLOBULIN G\HYALURONIDASE RECOMBINANT HUMAN
     Indication: IMMUNODEFICIENCY COMMON VARIABLE
     Dosage: 30 G, EVERY OTHER WEEK; SCHEDULED INFUSION
     Route: 058
     Dates: start: 20161027
  4. HYQVIA [Suspect]
     Active Substance: HUMAN IMMUNOGLOBULIN G\HYALURONIDASE RECOMBINANT HUMAN
     Dosage: 30 G, EVERY OTHER WEEK; INITIATED THERAPY
     Route: 058
     Dates: start: 20160504

REACTIONS (10)
  - Complication associated with device [Recovered/Resolved]
  - Nausea [Recovered/Resolved]
  - Ear pain [Recovering/Resolving]
  - Chills [Recovered/Resolved]
  - Injection site atrophy [Recovered/Resolved]
  - Upper respiratory tract infection [Recovered/Resolved]
  - Chills [Recovered/Resolved]
  - Oedema peripheral [Recovered/Resolved]
  - Infusion site discolouration [Recovering/Resolving]
  - Pain [Recovered/Resolved]

NARRATIVE: CASE EVENT DATE: 201605
